FAERS Safety Report 9335944 (Version 1)
Quarter: 2013Q2

REPORT INFORMATION
  Report Type: Spontaneous
  Country: US (occurrence: US)
  Receive Date: 20130606
  Receipt Date: 20130606
  Transmission Date: 20140414
  Serious: Yes (Hospitalization)
  Sender: FDA-Public Use
  Company Number: US-AMGEN-USASP2013028962

PATIENT
  Age: 85 Year
  Sex: Male
  Weight: 97.05 kg

DRUGS (7)
  1. XGEVA [Suspect]
     Indication: PROSTATE CANCER
     Dosage: 120 MG, Q4WK
     Route: 058
     Dates: start: 20120815, end: 20121010
  2. LASIX                              /00032601/ [Concomitant]
     Dosage: 20 MG, QD
     Route: 048
  3. ATENOLOL [Concomitant]
     Dosage: 50 MG, QD
     Route: 048
  4. NOVAXEN [Concomitant]
     Dosage: 5 MG, QD
     Route: 048
  5. CASODEX [Concomitant]
     Dosage: 50 MG, QD
     Route: 048
  6. TRELSTAR [Concomitant]
     Dosage: UNK UNK, Q9MO
     Route: 030
  7. VITAMIN D                          /00107901/ [Concomitant]

REACTIONS (1)
  - Hypocalcaemia [Recovered/Resolved]
